FAERS Safety Report 24434791 (Version 1)
Quarter: 2024Q4

REPORT INFORMATION
  Report Type: Spontaneous
  Country: CH (occurrence: CH)
  Receive Date: 20241014
  Receipt Date: 20241014
  Transmission Date: 20250115
  Serious: Yes (Hospitalization)
  Sender: AMERICAN REGENT
  Company Number: CH-AMERICAN REGENT INC-2024003852

PATIENT
  Age: 62 Year
  Sex: Female

DRUGS (1)
  1. FERINJECT [Suspect]
     Active Substance: FERRIC CARBOXYMALTOSE
     Indication: Product used for unknown indication
     Dosage: 1000 MILLIGRAM
     Route: 042

REACTIONS (2)
  - Atrial fibrillation [Recovered/Resolved]
  - Hypersensitivity [Recovered/Resolved]
